FAERS Safety Report 20306330 (Version 1)
Quarter: 2022Q1

REPORT INFORMATION
  Report Type: Spontaneous
  Country: BE (occurrence: BE)
  Receive Date: 20220106
  Receipt Date: 20220106
  Transmission Date: 20220423
  Serious: Yes (Other)
  Sender: FDA-Public Use
  Company Number: BE-PFIZER INC-202101875681

PATIENT
  Age: 55 Year
  Sex: Male
  Weight: 70 kg

DRUGS (2)
  1. LYRICA [Suspect]
     Active Substance: PREGABALIN
     Indication: Fibromyalgia
     Dosage: 125 MG, DAILY (25 MG IN THE MORNING AND NOON, 75 MG IN THE EVENING)
     Route: 048
     Dates: start: 20210420
  2. ACETAMINOPHEN [Concomitant]
     Active Substance: ACETAMINOPHEN
     Indication: Analgesic therapy
     Dosage: UNK, DAILY (MAX 4 G)

REACTIONS (1)
  - Colitis microscopic [Recovering/Resolving]

NARRATIVE: CASE EVENT DATE: 20210801
